FAERS Safety Report 5190305-1 (Version None)
Quarter: 2006Q4

REPORT INFORMATION
  Report Type: 
  Country: None (occurrence: None)
  Receive Date: 20061222
  Receipt Date: 20061212
  Transmission Date: 20070319
  Serious: Yes (Hospitalization, Other)
  Sender: FDA-Public Use
  Company Number: US-AMGEN-STX203384

PATIENT
  Sex: Female

DRUGS (2)
  1. ENBREL [Suspect]
     Indication: RHEUMATOID ARTHRITIS
     Route: 058
     Dates: start: 20040501
  2. PLAQUENIL [Concomitant]
     Route: 048
     Dates: start: 20030101

REACTIONS (5)
  - APPENDICITIS PERFORATED [None]
  - BUNION [None]
  - CHLAMYDIA SEROLOGY POSITIVE [None]
  - MASS [None]
  - MYCOBACTERIA BLOOD TEST POSITIVE [None]
